FAERS Safety Report 20842386 (Version 1)
Quarter: 2022Q2

REPORT INFORMATION
  Report Type: Report from Study
  Country: RO (occurrence: RO)
  Receive Date: 20220518
  Receipt Date: 20220518
  Transmission Date: 20220721
  Serious: Yes (Death)
  Sender: FDA-Public Use
  Company Number: RO-ABBVIE-22K-135-4397335-00

PATIENT
  Age: 67 Year
  Sex: Male

DRUGS (1)
  1. GLECAPREVIR\PIBRENTASVIR [Suspect]
     Active Substance: GLECAPREVIR\PIBRENTASVIR
     Indication: Hepatitis C
     Dosage: 300MG/120 MG
     Route: 048
     Dates: start: 20220314, end: 20220429

REACTIONS (18)
  - Rectal cancer [Fatal]
  - COVID-19 [Fatal]
  - Metastases to bone [Fatal]
  - Metastases to bone marrow [Fatal]
  - Metastases to lung [Fatal]
  - Nodule [Fatal]
  - Inguinal hernia [Fatal]
  - Spinal osteoarthritis [Fatal]
  - Spinal osteoarthritis [Fatal]
  - Paraplegia [Fatal]
  - Pain [Fatal]
  - Hyperkalaemia [Fatal]
  - Type 2 diabetes mellitus [Fatal]
  - Chronic kidney disease [Fatal]
  - Hyperuricaemia [Fatal]
  - Red blood cell sedimentation rate increased [Fatal]
  - Anaemia [Fatal]
  - Nodule [Fatal]

NARRATIVE: CASE EVENT DATE: 20220410
